FAERS Safety Report 21717645 (Version 5)
Quarter: 2024Q1

REPORT INFORMATION
  Report Type: Report from Study
  Country: US (occurrence: US)
  Receive Date: 20221212
  Receipt Date: 20240105
  Transmission Date: 20240410
  Serious: No
  Sender: FDA-Public Use
  Company Number: US-GBT-015159

PATIENT
  Age: 12 Year
  Sex: Female

DRUGS (3)
  1. OXBRYTA [Suspect]
     Active Substance: VOXELOTOR
     Dosage: 1500 MG
     Route: 048
     Dates: end: 20220906
  2. OXBRYTA [Suspect]
     Active Substance: VOXELOTOR
     Dosage: 900 MG
  3. OXBRYTA [Suspect]
     Active Substance: VOXELOTOR
     Dosage: 600 MG, 1X/DAY
     Route: 048

REACTIONS (3)
  - Headache [Not Recovered/Not Resolved]
  - Somnolence [Not Recovered/Not Resolved]
  - Headache [Recovered/Resolved]

NARRATIVE: CASE EVENT DATE: 20220801
